FAERS Safety Report 18300209 (Version 1)
Quarter: 2020Q3

REPORT INFORMATION
  Report Type: Spontaneous
  Country: NL (occurrence: NL)
  Receive Date: 20200923
  Receipt Date: 20200923
  Transmission Date: 20201103
  Serious: Yes (Other)
  Sender: FDA-Public Use
  Company Number: NL-ACCORD-202336

PATIENT
  Sex: Male
  Weight: 70 kg

DRUGS (5)
  1. CLOPIDOGREL [Concomitant]
     Active Substance: CLOPIDOGREL BISULFATE
     Dosage: TABLET 75 MG
  2. OLANZAPINE. [Concomitant]
     Active Substance: OLANZAPINE
     Dosage: ORODISPERSIBLE TABLET10 MG,
  3. COLECALCIFEROL [Concomitant]
     Active Substance: CHOLECALCIFEROL
     Dosage: CAPSULE 5600 IU
  4. SERTRALINE [Suspect]
     Active Substance: SERTRALINE HYDROCHLORIDE
     Indication: DEPRESSION
     Dosage: TABLET 100 MG, 75
     Dates: start: 201909, end: 20190924
  5. CLONAZEPAM. [Concomitant]
     Active Substance: CLONAZEPAM
     Dosage: TABLET 0.5 MG

REACTIONS (2)
  - Parkinsonism [Recovered/Resolved]
  - Urinary incontinence [Recovered/Resolved]
